FAERS Safety Report 15077061 (Version 1)
Quarter: 2018Q2

REPORT INFORMATION
  Report Type: Spontaneous
  Country: US (occurrence: US)
  Receive Date: 20180607
  Receipt Date: 20180607
  Transmission Date: 20180711
  Serious: Yes (Disabling, Other)
  Sender: FDA-Public Use
  Company Number: None

PATIENT
  Age: 50 Year
  Sex: Male
  Weight: 85.5 kg

DRUGS (1)
  1. TRULICITY [Suspect]
     Active Substance: DULAGLUTIDE
     Indication: DIABETES MELLITUS
     Dates: start: 20180101, end: 20180107

REACTIONS (5)
  - Lung disorder [None]
  - Nasal disorder [None]
  - Dyspnoea [None]
  - Erectile dysfunction [None]
  - Cough [None]

NARRATIVE: CASE EVENT DATE: 20180101
